FAERS Safety Report 13878014 (Version 2)
Quarter: 2017Q4

REPORT INFORMATION
  Report Type: Report from Study
  Country: US (occurrence: US)
  Receive Date: 20170817
  Receipt Date: 20171103
  Transmission Date: 20180320
  Serious: Yes (Hospitalization, Other)
  Sender: FDA-Public Use
  Company Number: US-BAYER-2017-008355

PATIENT
  Age: 64 Year
  Sex: Female

DRUGS (24)
  1. BETASERON [Suspect]
     Active Substance: INTERFERON BETA-1B
     Indication: RELAPSING-REMITTING MULTIPLE SCLEROSIS
     Dosage: UNK
     Dates: start: 19991011, end: 20081001
  2. BETASERON [Suspect]
     Active Substance: INTERFERON BETA-1B
     Indication: RELAPSING-REMITTING MULTIPLE SCLEROSIS
     Dosage: UNK
     Dates: start: 20120501, end: 20120523
  3. KLONOPIN [Concomitant]
     Active Substance: CLONAZEPAM
  4. ALPHAGAN P [Concomitant]
     Active Substance: BRIMONIDINE TARTRATE
  5. BETASERON [Suspect]
     Active Substance: INTERFERON BETA-1B
     Indication: RELAPSING-REMITTING MULTIPLE SCLEROSIS
     Dosage: 8 MIU, TIW
     Route: 058
     Dates: start: 20170301, end: 20171026
  6. BETASERON [Suspect]
     Active Substance: INTERFERON BETA-1B
     Indication: RELAPSING-REMITTING MULTIPLE SCLEROSIS
     Dosage: UNK
     Dates: start: 20130211, end: 20131120
  7. RITALIN [Concomitant]
     Active Substance: METHYLPHENIDATE HYDROCHLORIDE
  8. ZANAFLEX [Concomitant]
     Active Substance: TIZANIDINE HYDROCHLORIDE
  9. WELLBUTRIN [Concomitant]
     Active Substance: BUPROPION HYDROCHLORIDE
  10. SYNTHROID [Concomitant]
     Active Substance: LEVOTHYROXINE SODIUM
  11. BETASERON [Suspect]
     Active Substance: INTERFERON BETA-1B
     Indication: RELAPSING-REMITTING MULTIPLE SCLEROSIS
     Dosage: UNK
     Dates: start: 20120531, end: 20120601
  12. FOLIC ACID. [Concomitant]
     Active Substance: FOLIC ACID
  13. BETASERON [Suspect]
     Active Substance: INTERFERON BETA-1B
     Indication: RELAPSING-REMITTING MULTIPLE SCLEROSIS
     Dosage: UNK
     Dates: start: 20090901, end: 20090930
  14. BETASERON [Suspect]
     Active Substance: INTERFERON BETA-1B
     Indication: RELAPSING-REMITTING MULTIPLE SCLEROSIS
     Dosage: UNK
     Route: 058
     Dates: start: 20120501, end: 20120523
  15. OXAZOLAM [Concomitant]
     Active Substance: OXAZOLAM
  16. CALCIUM [Concomitant]
     Active Substance: CALCIUM
  17. BETASERON [Suspect]
     Active Substance: INTERFERON BETA-1B
     Indication: RELAPSING-REMITTING MULTIPLE SCLEROSIS
     Dosage: 8 MIU, TIW
     Route: 058
     Dates: start: 20170301, end: 20171020
  18. BIOTIN [Concomitant]
     Active Substance: BIOTIN
  19. PROZAC [Concomitant]
     Active Substance: FLUOXETINE HYDROCHLORIDE
  20. BETASERON [Suspect]
     Active Substance: INTERFERON BETA-1B
     Indication: RELAPSING-REMITTING MULTIPLE SCLEROSIS
     Dosage: UNK
     Dates: start: 20120206, end: 20120417
  21. FORTEO [Concomitant]
     Active Substance: TERIPARATIDE
  22. TYLENOL [Concomitant]
     Active Substance: ACETAMINOPHEN
  23. NEURONTIN [Concomitant]
     Active Substance: GABAPENTIN
  24. MAGNESIUM [Concomitant]
     Active Substance: MAGNESIUM

REACTIONS (10)
  - Spinal cord neoplasm [Recovering/Resolving]
  - Dysphagia [None]
  - Gastric haemorrhage [Recovering/Resolving]
  - Injection site pain [Recovered/Resolved]
  - Multiple sclerosis [None]
  - Injection site mass [Recovered/Resolved]
  - Hip fracture [Recovered/Resolved]
  - Injection site reaction [Recovered/Resolved]
  - Nasopharyngitis [Not Recovered/Not Resolved]
  - Cellulitis [Recovered/Resolved]

NARRATIVE: CASE EVENT DATE: 20160417
